FAERS Safety Report 19840824 (Version 4)
Quarter: 2022Q2

REPORT INFORMATION
  Report Type: Spontaneous
  Country: US (occurrence: US)
  Receive Date: 20210916
  Receipt Date: 20220512
  Transmission Date: 20220721
  Serious: No
  Sender: FDA-Public Use
  Company Number: US-PFIZER INC-2021592738

PATIENT
  Age: 75 Year
  Sex: Female

DRUGS (3)
  1. XELJANZ [Suspect]
     Active Substance: TOFACITINIB CITRATE
     Dosage: 5 MG, 2X/DAY
  2. METHOTREXATE [Concomitant]
     Active Substance: METHOTREXATE
     Dosage: UNK
  3. PRORENAL + D MULTIVITAMIN WITH OMEGA 3 [Concomitant]
     Indication: Renal disorder
     Dosage: UNK

REACTIONS (2)
  - Gait disturbance [Unknown]
  - Hypoaesthesia [Unknown]
